FAERS Safety Report 9284980 (Version 2)
Quarter: 2013Q4

REPORT INFORMATION
  Report Type: Spontaneous
  Country: DK (occurrence: DK)
  Receive Date: 20130513
  Receipt Date: 20131129
  Transmission Date: 20140711
  Serious: Yes (Other)
  Sender: FDA-Public Use
  Company Number: PHHY2013DK045026

PATIENT
  Age: 74 Year
  Sex: Female

DRUGS (2)
  1. ACLASTA [Suspect]
     Indication: OSTEOPOROSIS
     Dosage: 5 MG/YEAR
     Route: 042
     Dates: start: 2007
  2. DIOVAN COMP [Concomitant]
     Indication: HYPERTENSION
     Dosage: 160MG/12.5MG

REACTIONS (1)
  - Osteonecrosis of jaw [Recovered/Resolved]
